FAERS Safety Report 8010030-9 (Version None)
Quarter: 2011Q4

REPORT INFORMATION
  Report Type: 
  Country: None (occurrence: None)
  Receive Date: 20111221
  Receipt Date: 20111207
  Transmission Date: 20120403
  Serious: Yes (Hospitalization)
  Sender: FDA-Public Use
  Company Number: JPI-P-018334

PATIENT
  Age: 59 Year
  Sex: Female

DRUGS (3)
  1. XYREM [Suspect]
     Indication: NARCOLEPSY
     Dosage: 4.5 GM (2.25 GM, 2 IN 1 D), ORAL (UNKNOWN), ORAL 6 GM (3 GM, 2 IN 1 D), ORAL
     Route: 048
     Dates: start: 20111122
  2. XYREM [Suspect]
     Indication: NARCOLEPSY
     Dosage: 4.5 GM (2.25 GM, 2 IN 1 D), ORAL (UNKNOWN), ORAL 6 GM (3 GM, 2 IN 1 D), ORAL
     Route: 048
     Dates: start: 20070518
  3. XYREM [Suspect]
     Indication: NARCOLEPSY
     Dosage: 4.5 GM (2.25 GM, 2 IN 1 D), ORAL (UNKNOWN), ORAL 6 GM (3 GM, 2 IN 1 D), ORAL
     Route: 048
     Dates: start: 20070807, end: 20111117

REACTIONS (2)
  - HYPOTENSION [None]
  - CHOLELITHIASIS [None]
